FAERS Safety Report 7454518-8 (Version None)
Quarter: 2011Q2

REPORT INFORMATION
  Report Type: 
  Country: None (occurrence: None)
  Receive Date: 20110503
  Receipt Date: 20110426
  Transmission Date: 20111010
  Serious: Yes (Hospitalization)
  Sender: FDA-Public Use
  Company Number: PHHY2011EC35255

PATIENT
  Age: 92 Year
  Sex: Female

DRUGS (3)
  1. PREDNISONE [Concomitant]
  2. ACLASTA [Suspect]
     Indication: OSTEOPOROSIS
     Dosage: 5MG/100ML
     Route: 042
     Dates: start: 20100603
  3. ATENOLOL [Concomitant]

REACTIONS (3)
  - DIARRHOEA [None]
  - CEREBROVASCULAR ACCIDENT [None]
  - QUALITY OF LIFE DECREASED [None]
